FAERS Safety Report 4768572-5 (Version None)
Quarter: 2005Q3

REPORT INFORMATION
  Report Type: 
  Country: None (occurrence: None)
  Receive Date: 20050914
  Receipt Date: 20050907
  Transmission Date: 20060218
  Serious: Yes (Death, Hospitalization)
  Sender: FDA-Public Use
  Company Number: US-JNJFOC-20050901915

PATIENT
  Age: 33 Year
  Sex: Female

DRUGS (2)
  1. ACETAMINOPHEN [Suspect]
     Route: 048
  2. ACETAMINOPHEN [Suspect]
     Route: 048

REACTIONS (7)
  - BLOOD CREATININE INCREASED [None]
  - COMPLETED SUICIDE [None]
  - DEPRESSED LEVEL OF CONSCIOUSNESS [None]
  - HEPATIC ENZYME INCREASED [None]
  - INTENTIONAL MISUSE [None]
  - METABOLIC ACIDOSIS [None]
  - MOUTH HAEMORRHAGE [None]
